FAERS Safety Report 13659491 (Version 1)
Quarter: 2017Q2

REPORT INFORMATION
  Report Type: Spontaneous
  Country: US (occurrence: US)
  Receive Date: 20170615
  Receipt Date: 20170615
  Transmission Date: 20170830
  Serious: Yes (Disabling)
  Sender: FDA-Public Use
  Company Number: None

PATIENT
  Age: 79 Year
  Sex: Male

DRUGS (5)
  1. PREDNISONE. [Concomitant]
     Active Substance: PREDNISONE
  2. WARFARIN [Concomitant]
     Active Substance: WARFARIN
  3. SINGULAIR [Concomitant]
     Active Substance: MONTELUKAST SODIUM
  4. NYSTATIN ORAL SUSPENSION 100000 UNITS PER ML [Suspect]
     Active Substance: NYSTATIN
  5. DONZEPIZIL [Concomitant]

REACTIONS (3)
  - Diarrhoea [None]
  - Anal injury [None]
  - Abdominal discomfort [None]

NARRATIVE: CASE EVENT DATE: 20170610
